FAERS Safety Report 5692763-2 (Version None)
Quarter: 2008Q2

REPORT INFORMATION
  Report Type: 
  Country: None (occurrence: None)
  Receive Date: 20080401
  Receipt Date: 20080317
  Transmission Date: 20081010
  Serious: Yes (Hospitalization)
  Sender: FDA-Public Use
  Company Number: 2008S1004419

PATIENT
  Age: 58 Year
  Sex: Female

DRUGS (14)
  1. TACIDINE (NIZATIDINE) (150 MG) [Suspect]
     Indication: GASTROOESOPHAGEAL REFLUX DISEASE
     Dosage: 150 MG; TWICE A DAY; ORAL
     Route: 048
     Dates: start: 20080227, end: 20080313
  2. PANTOPRAZOLE SODIUM [Concomitant]
  3. MOTILIUM [Concomitant]
  4. NOTEN [Concomitant]
  5. LIPITOR [Concomitant]
  6. ASPRO [Concomitant]
  7. OXYCONTIN [Concomitant]
  8. NITRO-DUR [Concomitant]
  9. NITROLINGUAL PUMPSPRAY [Concomitant]
  10. ATROVENT [Concomitant]
  11. MYLANTA [Concomitant]
  12. UREMIDE [Concomitant]
  13. SYMBICORT [Concomitant]
  14. ASMOL [Concomitant]

REACTIONS (6)
  - CHEST PAIN [None]
  - CONDITION AGGRAVATED [None]
  - DYSPNOEA [None]
  - LIP SWELLING [None]
  - OEDEMA MOUTH [None]
  - URTICARIA [None]
